FAERS Safety Report 14505204 (Version 2)
Quarter: 2018Q1

REPORT INFORMATION
  Report Type: Report from Study
  Country: MX (occurrence: MX)
  Receive Date: 20180208
  Receipt Date: 20180216
  Transmission Date: 20180509
  Serious: Yes (Hospitalization, Other)
  Sender: FDA-Public Use
  Company Number: MX-UCBSA-2018004329

PATIENT
  Age: 6 Year
  Sex: Male
  Weight: 31 kg

DRUGS (5)
  1. VIMPAT [Suspect]
     Active Substance: LACOSAMIDE
     Dosage: 100 MG, 2X/DAY (BID); 1 TABLET DILUTED IN 1ML OF WATER/12 HRS
     Route: 048
     Dates: start: 201708
  2. LEVETIRACETAM. [Suspect]
     Active Substance: LEVETIRACETAM
     Indication: EPILEPSY
     Dosage: UNKNOWN INITIAL DOSE, STRENGTH: 100MG/ML
     Route: 048
     Dates: start: 2012
  3. VIMPAT [Suspect]
     Active Substance: LACOSAMIDE
     Indication: EPILEPSY
     Dosage: UNKNOWN INITIAL DOSE; STRENGTH: 100 MG
  4. LEVETIRACETAM. [Suspect]
     Active Substance: LEVETIRACETAM
     Dosage: 8 ML, 2X/DAY (BID)
     Route: 048
  5. VALPROATE MAGNESIUM [Concomitant]
     Active Substance: VALPROATE MAGNESIUM
     Indication: EPILEPSY
     Dosage: 5 ML, 3X/DAY (TID)

REACTIONS (4)
  - Hydrocephalus [Recovered/Resolved]
  - Drug ineffective [Unknown]
  - Myoclonus [Recovering/Resolving]
  - Off label use [Unknown]

NARRATIVE: CASE EVENT DATE: 201205
